FAERS Safety Report 10015228 (Version 3)
Quarter: 2014Q2

REPORT INFORMATION
  Report Type: Spontaneous
  Country: US (occurrence: US)
  Receive Date: 20140317
  Receipt Date: 20140529
  Transmission Date: 20141212
  Serious: No
  Sender: FDA-Public Use
  Company Number: US-PFIZER INC-2014071599

PATIENT
  Age: 49 Year
  Sex: Male

DRUGS (6)
  1. SUTENT [Suspect]
     Indication: PANCREATIC CARCINOMA
     Dosage: 50 MG, DAILY
     Route: 048
     Dates: start: 20121229, end: 20140523
  2. VICODIN [Concomitant]
     Dosage: UNK
  3. PANCREASE [Concomitant]
     Dosage: UNK
  4. FENTANYL [Concomitant]
     Dosage: UNK
  5. MOTRIN [Concomitant]
     Dosage: UNK
  6. ACETAMINOPHEN [Concomitant]
     Dosage: UNK

REACTIONS (5)
  - Paraesthesia [Unknown]
  - Hypoaesthesia [Unknown]
  - Pain [Unknown]
  - Haemorrhoids [Unknown]
  - Diarrhoea [Unknown]
